FAERS Safety Report 8928966 (Version 1)
Quarter: 2012Q4

REPORT INFORMATION
  Report Type: 
  Country: IT (occurrence: IT)
  Receive Date: 20121128
  Receipt Date: 20121128
  Transmission Date: 20130627
  Serious: Yes (Hospitalization)
  Sender: FDA-Public Use
  Company Number: IT-BRISTOL-MYERS SQUIBB COMPANY-17141029

PATIENT
  Age: 84 Year
  Sex: Female

DRUGS (9)
  1. COUMADIN TABS 5 MG [Suspect]
     Indication: ATRIAL FIBRILLATION
     Dosage: interr and restarted
     Route: 048
     Dates: start: 20120101, end: 20120404
  2. FUROSEMIDE [Concomitant]
     Dosage: tabs
     Route: 048
  3. FORZAAR [Concomitant]
     Dosage: 1df= Forzaar 100 MG + 25 MG tabs
     Route: 048
  4. LEGALON [Concomitant]
     Route: 048
  5. BRUFEN [Concomitant]
     Route: 048
  6. CATAPRESAN [Concomitant]
     Dosage: tabs
     Route: 048
  7. LYRICA [Concomitant]
     Dosage: tabs
     Route: 048
  8. DILATREND [Concomitant]
     Dosage: 1df=1dosage unit
tabs
     Route: 048
  9. LANOXIN [Concomitant]
     Dosage: 1dosage unit
     Route: 048

REACTIONS (1)
  - Anaemia [Recovering/Resolving]
